FAERS Safety Report 5526940-8 (Version None)
Quarter: 2007Q4

REPORT INFORMATION
  Report Type: 
  Country: None (occurrence: None)
  Receive Date: 20071127
  Receipt Date: 20071115
  Transmission Date: 20080405
  Serious: Yes (Other)
  Sender: FDA-Public Use
  Company Number: US-PFIZER INC-2007097163

PATIENT
  Age: 1 Year
  Weight: 11.7 kg

DRUGS (1)
  1. ZITHROMAX [Suspect]
     Route: 030

REACTIONS (4)
  - ERYTHEMA [None]
  - INJECTION SITE SWELLING [None]
  - MEDICATION ERROR [None]
  - PAIN [None]
